FAERS Safety Report 5079375-9 (Version None)
Quarter: 2006Q3

REPORT INFORMATION
  Report Type: 
  Country: None (occurrence: None)
  Receive Date: 20060814
  Receipt Date: 20060804
  Transmission Date: 20061208
  Serious: Yes (Hospitalization, Other)
  Sender: FDA-Public Use
  Company Number: AU-JNJFOC-20060801404

PATIENT
  Age: 23 Year
  Sex: Female
  Weight: 70 kg

DRUGS (7)
  1. REMICADE [Suspect]
     Route: 042
  2. REMICADE [Suspect]
     Route: 042
  3. REMICADE [Suspect]
     Indication: CROHN'S DISEASE
     Route: 042
  4. SULFASALAZINE [Concomitant]
  5. METHOTREXATE [Concomitant]
  6. PREDNISONE TAB [Concomitant]
  7. FOLIC ACID [Concomitant]

REACTIONS (1)
  - LUPUS-LIKE SYNDROME [None]
